FAERS Safety Report 6870411-3 (Version None)
Quarter: 2010Q3

REPORT INFORMATION
  Report Type: 
  Country: None (occurrence: None)
  Receive Date: 20100723
  Receipt Date: 20100714
  Transmission Date: 20110219
  Serious: No
  Sender: FDA-Public Use
  Company Number: US-BIOGENIDEC-2010BI024534

PATIENT
  Age: 52 Year
  Sex: Female

DRUGS (3)
  1. TYSABRI [Suspect]
     Indication: MULTIPLE SCLEROSIS
     Route: 042
     Dates: start: 20070418, end: 20071016
  2. TYSABRI [Suspect]
     Route: 042
     Dates: start: 20091125
  3. MEDICATION (NOS) [Concomitant]

REACTIONS (5)
  - ARTHRALGIA [None]
  - HYPOAESTHESIA [None]
  - MULTIPLE SCLEROSIS [None]
  - MUSCLE SPASMS [None]
  - URINARY TRACT INFECTION [None]
